FAERS Safety Report 8919881 (Version 2)
Quarter: 2012Q4

REPORT INFORMATION
  Report Type: 
  Country: NL (occurrence: NL)
  Receive Date: 20121121
  Receipt Date: 20121218
  Transmission Date: 20130627
  Serious: Yes (Hospitalization)
  Sender: FDA-Public Use
  Company Number: NL-AMGEN-NLDSP2012074304

PATIENT
  Age: 64 Year
  Sex: Male

DRUGS (8)
  1. ENBREL [Suspect]
     Indication: RHEUMATOID ARTHRITIS
     Dosage: 50 mg, weekly
     Dates: start: 2009
  2. IMURAN                             /00001501/ [Concomitant]
     Dosage: UNK
  3. OMEPRAZOL                          /00661201/ [Concomitant]
     Dosage: UNK
  4. AMLODIPINE [Concomitant]
     Dosage: UNK
  5. ASCAL                              /00002702/ [Concomitant]
     Dosage: UNK
  6. DICLOFENAC [Concomitant]
     Dosage: UNK
  7. SIMVASTATIN [Concomitant]
     Dosage: UNK
  8. NITROBAAT [Concomitant]
     Dosage: UNK
     Route: 060

REACTIONS (1)
  - Myocardial infarction [Recovering/Resolving]
